FAERS Safety Report 8524522 (Version 17)
Quarter: 2017Q1

REPORT INFORMATION
  Report Type: Report from Study
  Country: CA (occurrence: CA)
  Receive Date: 20120420
  Receipt Date: 20170308
  Transmission Date: 20170429
  Serious: Yes (Hospitalization, Other)
  Sender: FDA-Public Use
  Company Number: CA-ROCHE-1059526

PATIENT
  Age: 65 Year
  Sex: Male
  Weight: 135 kg

DRUGS (22)
  1. ACTEMRA [Suspect]
     Active Substance: TOCILIZUMAB
     Route: 042
     Dates: start: 20150602
  2. FOLIC ACID. [Concomitant]
     Active Substance: FOLIC ACID
  3. HYDRALAZINE [Concomitant]
     Active Substance: HYDRALAZINE HYDROCHLORIDE
  4. DIOVAN [Concomitant]
     Active Substance: VALSARTAN
  5. ELTROXIN [Concomitant]
     Active Substance: LEVOTHYROXINE
  6. OMEGA 3-6-9 (CANADA) [Concomitant]
  7. ACTEMRA [Suspect]
     Active Substance: TOCILIZUMAB
     Indication: RHEUMATOID ARTHRITIS
     Route: 042
     Dates: start: 20120327, end: 20120615
  8. DIAMICRON [Concomitant]
     Active Substance: GLICLAZIDE
  9. BISOPROLOL [Concomitant]
     Active Substance: BISOPROLOL
  10. ARAVA [Concomitant]
     Active Substance: LEFLUNOMIDE
  11. EFFEXOR [Concomitant]
     Active Substance: VENLAFAXINE HYDROCHLORIDE
  12. ACETYLSALICYLIC ACID [Concomitant]
     Active Substance: ASPIRIN
     Route: 065
  13. HALIBUT OIL [Concomitant]
  14. ACTEMRA [Suspect]
     Active Substance: TOCILIZUMAB
     Route: 042
     Dates: start: 20131112
  15. ACTEMRA [Suspect]
     Active Substance: TOCILIZUMAB
     Route: 042
     Dates: start: 20160411
  16. HUMULIN N INSULIN [Concomitant]
  17. FUROSEMIDE. [Concomitant]
     Active Substance: FUROSEMIDE
  18. SPIRONOLACTONE. [Concomitant]
     Active Substance: SPIRONOLACTONE
  19. ATORVASTATIN [Concomitant]
     Active Substance: ATORVASTATIN
  20. PREDNISONE. [Concomitant]
     Active Substance: PREDNISONE
  21. VITAMIN B COMPLEX [Concomitant]
     Active Substance: CYANOCOBALAMIN\DEXPANTHENOL\NIACINAMIDE\PYRIDOXINE HYDROCHLORIDE\RIBOFLAVIN 5^-PHOSPHATE SODIUM\THIAMINE HYDROCHLORIDE\VITAMIN B COMPLEX
  22. VITAMIN C [Concomitant]
     Active Substance: ASCORBIC ACID

REACTIONS (19)
  - Ulcer haemorrhage [Recovered/Resolved]
  - Hip surgery [Not Recovered/Not Resolved]
  - Weight increased [Unknown]
  - Drug ineffective [Unknown]
  - Bronchitis [Recovered/Resolved]
  - Joint swelling [Unknown]
  - Myocardial infarction [Unknown]
  - Diabetic foot [Not Recovered/Not Resolved]
  - Hypotension [Unknown]
  - Influenza [Recovered/Resolved]
  - Weight decreased [Unknown]
  - Infection [Recovered/Resolved]
  - Fall [Unknown]
  - Limb injury [Recovered/Resolved]
  - Diarrhoea [Recovered/Resolved]
  - Hyperglycaemia [Unknown]
  - Nasopharyngitis [Recovered/Resolved]
  - Laceration [Not Recovered/Not Resolved]
  - Malaise [Unknown]

NARRATIVE: CASE EVENT DATE: 2013
